FAERS Safety Report 13712875 (Version 2)
Quarter: 2017Q3

REPORT INFORMATION
  Report Type: Report from Study
  Country: US (occurrence: US)
  Receive Date: 20170703
  Receipt Date: 20170726
  Transmission Date: 20171127
  Serious: Yes (Hospitalization, Other)
  Sender: FDA-Public Use
  Company Number: US-ASTRAZENECA-2017SE66188

PATIENT
  Age: 56 Year
  Sex: Female

DRUGS (8)
  1. BISACODYL. [Concomitant]
     Active Substance: BISACODYL
     Route: 065
  2. CERTIRIZINE (ZYRTEC) [Concomitant]
     Route: 065
  3. ALPRAZOLAM. [Concomitant]
     Active Substance: ALPRAZOLAM
     Route: 065
  4. IPH2201 [Suspect]
     Active Substance: MONALIZUMAB
     Indication: NEOPLASM MALIGNANT
     Route: 042
     Dates: start: 20170316
  5. ZOLPIDEM [Concomitant]
     Active Substance: ZOLPIDEM\ZOLPIDEM TARTRATE
     Route: 065
  6. LEVOTHYROXINE. [Concomitant]
     Active Substance: LEVOTHYROXINE
     Route: 065
  7. POLYETHYLENE GLYCOL [Concomitant]
     Active Substance: POLYETHYLENE GLYCOLS
     Route: 065
  8. MEDI4736 [Suspect]
     Active Substance: DURVALUMAB
     Indication: NEOPLASM MALIGNANT
     Route: 042
     Dates: start: 20170316

REACTIONS (1)
  - Encephalitis autoimmune [Recovered/Resolved]

NARRATIVE: CASE EVENT DATE: 20170622
